FAERS Safety Report 6021736-5 (Version None)
Quarter: 2008Q4

REPORT INFORMATION
  Report Type: 
  Country: None (occurrence: None)
  Receive Date: 20081229
  Receipt Date: 20081219
  Transmission Date: 20090506
  Serious: Yes (Other)
  Sender: FDA-Public Use
  Company Number: PHHY2008CH32671

PATIENT
  Age: 25 Year
  Sex: Female

DRUGS (7)
  1. VOLTAREN [Suspect]
     Indication: PROCEDURAL PAIN
  2. PONSTAN [Suspect]
     Indication: PROCEDURAL PAIN
  3. PROPOFOL [Suspect]
     Indication: ANAESTHESIA
     Route: 042
  4. MIDAZOLAM HCL [Suspect]
     Indication: SEDATION
     Route: 042
  5. FENTANYL-100 [Suspect]
     Indication: ANALGESIA
     Route: 042
  6. FENTANYL-100 [Suspect]
     Indication: SEDATION
  7. PARACETAMOL [Suspect]
     Indication: PROCEDURAL PAIN
     Route: 042

REACTIONS (2)
  - ABORTION SPONTANEOUS [None]
  - DRUG EXPOSURE DURING PREGNANCY [None]
